FAERS Safety Report 5243312-4 (Version None)
Quarter: 2007Q1

REPORT INFORMATION
  Report Type: 
  Country: None (occurrence: None)
  Receive Date: 20070215
  Receipt Date: 20070205
  Transmission Date: 20070707
  Serious: Yes (Death, Other)
  Sender: FDA-Public Use
  Company Number: 2007JP000503

PATIENT
  Age: 52 Year
  Sex: Female

DRUGS (4)
  1. PROGRAF [Suspect]
     Indication: STEM CELL TRANSPLANT
  2. METHOTREXATE (METHOTREXATE SODIUM) [Concomitant]
  3. ACYCLOVIR [Concomitant]
  4. PREDNISOLONE [Concomitant]

REACTIONS (5)
  - CONVULSION [None]
  - DRUG INEFFECTIVE [None]
  - HUMAN HERPESVIRUS 6 INFECTION [None]
  - MENINGOENCEPHALITIS HERPETIC [None]
  - SEPSIS [None]
